FAERS Safety Report 13171799 (Version 1)
Quarter: 2017Q1

REPORT INFORMATION
  Report Type: Spontaneous
  Country: US (occurrence: US)
  Receive Date: 20170131
  Receipt Date: 20170131
  Transmission Date: 20170428
  Serious: No
  Sender: FDA-Public Use
  Company Number: US-ABBVIE-16K-163-1714411-00

PATIENT

DRUGS (1)
  1. HUMIRA [Suspect]
     Active Substance: ADALIMUMAB
     Indication: CROHN^S DISEASE
     Route: 058

REACTIONS (9)
  - Weight gain poor [Unknown]
  - Hypoaesthesia [Unknown]
  - Fatigue [Unknown]
  - Crohn^s disease [Unknown]
  - Muscular weakness [Unknown]
  - Diarrhoea [Unknown]
  - Abdominal pain lower [Unknown]
  - Lethargy [Unknown]
  - Drug ineffective [Unknown]
